FAERS Safety Report 13765310 (Version 1)
Quarter: 2017Q3

REPORT INFORMATION
  Report Type: Spontaneous
  Country: US (occurrence: US)
  Receive Date: 20170718
  Receipt Date: 20170718
  Transmission Date: 20171127
  Serious: Yes (Death, Other)
  Sender: FDA-Public Use
  Company Number: US-JNJFOC-20170712744

PATIENT
  Sex: Female

DRUGS (1)
  1. DARZALEX [Suspect]
     Active Substance: DARATUMUMAB
     Indication: PRODUCT USED FOR UNKNOWN INDICATION
     Route: 042

REACTIONS (7)
  - Platelet count decreased [Unknown]
  - Death [Fatal]
  - Vomiting [Recovered/Resolved]
  - Chills [Unknown]
  - Malaise [Unknown]
  - Infusion related reaction [Unknown]
  - Headache [Unknown]

NARRATIVE: CASE EVENT DATE: 20170430
